FAERS Safety Report 6139994-5 (Version None)
Quarter: 2009Q2

REPORT INFORMATION
  Report Type: 
  Country: None (occurrence: None)
  Receive Date: 20090401
  Receipt Date: 20090326
  Transmission Date: 20091009
  Serious: Yes (Other)
  Sender: FDA-Public Use
  Company Number: KR-JNJFOC-20090305873

PATIENT
  Age: 65 Year
  Sex: Female

DRUGS (7)
  1. ABCIXIMAB [Suspect]
     Indication: PERCUTANEOUS CORONARY INTERVENTION
     Route: 013
  2. HEPARIN [Concomitant]
     Route: 042
  3. HEPARIN [Concomitant]
     Route: 042
  4. HEPARIN [Concomitant]
     Indication: MYOCARDIAL INFARCTION
     Route: 042
  5. ASPIRIN [Concomitant]
     Indication: MYOCARDIAL INFARCTION
  6. CLOPIDOGREL [Concomitant]
     Indication: MYOCARDIAL INFARCTION
  7. HEPARIN [Concomitant]
     Indication: PERCUTANEOUS CORONARY INTERVENTION
     Route: 013

REACTIONS (3)
  - GINGIVAL BLEEDING [None]
  - INCORRECT ROUTE OF DRUG ADMINISTRATION [None]
  - THROMBOCYTOPENIA [None]
